FAERS Safety Report 18614681 (Version 1)
Quarter: 2020Q4

REPORT INFORMATION
  Report Type: Spontaneous
  Country: US (occurrence: US)
  Receive Date: 20201214
  Receipt Date: 20201214
  Transmission Date: 20210114
  Serious: No
  Sender: FDA-Public Use
  Company Number: US-ABBVIE-20K-163-3555954-00

PATIENT
  Age: 70 Year
  Sex: Male
  Weight: 68.1 kg

DRUGS (5)
  1. METOPROLOL. [Concomitant]
     Active Substance: METOPROLOL
     Indication: HYPERTENSION
     Route: 048
     Dates: start: 2020
  2. ATORVASTATIN [Concomitant]
     Active Substance: ATORVASTATIN
     Indication: BLOOD CHOLESTEROL INCREASED
     Route: 048
     Dates: start: 2011
  3. IMBRUVICA [Suspect]
     Active Substance: IBRUTINIB
     Indication: CHRONIC LYMPHOCYTIC LEUKAEMIA
     Route: 048
     Dates: start: 202004
  4. METOPROLOL. [Concomitant]
     Active Substance: METOPROLOL
     Indication: HYPERTENSION
     Route: 048
     Dates: start: 2011, end: 2020
  5. LEVOTHYROXINE. [Concomitant]
     Active Substance: LEVOTHYROXINE
     Indication: THYROID DISORDER
     Route: 048

REACTIONS (7)
  - Dizziness [Not Recovered/Not Resolved]
  - Thyroid disorder [Unknown]
  - Sinus headache [Not Recovered/Not Resolved]
  - Blood pressure systolic abnormal [Unknown]
  - Hypersensitivity [Unknown]
  - Headache [Not Recovered/Not Resolved]
  - Hypertension [Not Recovered/Not Resolved]

NARRATIVE: CASE EVENT DATE: 2020
